FAERS Safety Report 10682343 (Version 1)
Quarter: 2014Q4

REPORT INFORMATION
  Report Type: Spontaneous
  Country: DE (occurrence: None)
  Receive Date: 20141224
  Receipt Date: 20141224
  Transmission Date: 20150529
  Serious: Yes (Hospitalization, Other)
  Sender: FDA-Public Use
  Company Number: DE-20140210

PATIENT
  Age: 24 Year
  Sex: Female

DRUGS (5)
  1. NESTARGEL (CAROB SEED FLOUR, CALCIUM LACTATE) [Concomitant]
  2. DOTAREM [Suspect]
     Active Substance: GADOTERATE MEGLUMINE
     Indication: NUCLEAR MAGNETIC RESONANCE IMAGING
     Route: 042
     Dates: start: 20141204
  3. MANNITOL (MANNITOL) [Concomitant]
  4. METHYLCELLULOSE [Suspect]
     Active Substance: METHYLCELLULOSES
     Indication: NUCLEAR MAGNETIC RESONANCE IMAGING
     Dosage: UNK 2 L THERAPY DURATION- 1 HOUR
     Route: 048
     Dates: start: 20141204
  5. BUSCOPAN (BUTYLSCOPOLAMINIUM BROMIDE) [Concomitant]

REACTIONS (3)
  - Product use issue [None]
  - Visual impairment [None]
  - Chills [None]

NARRATIVE: CASE EVENT DATE: 20141204
